FAERS Safety Report 13818159 (Version 1)
Quarter: 2017Q3

REPORT INFORMATION
  Report Type: Spontaneous
  Country: US (occurrence: US)
  Receive Date: 20170731
  Receipt Date: 20170731
  Transmission Date: 20171127
  Serious: No
  Sender: FDA-Public Use
  Company Number: US-ROCHE-634337

PATIENT
  Sex: Female

DRUGS (12)
  1. MULTIVITAMIN NOS [Concomitant]
     Active Substance: VITAMINS
     Dosage: DRUG REPORTED: MULTIVITAMINS
     Route: 065
  2. STOOL SOFTENER NOS [Concomitant]
     Route: 065
  3. BABY ASA [Concomitant]
     Active Substance: ASPIRIN
     Route: 065
  4. PROTONIX [Concomitant]
     Active Substance: PANTOPRAZOLE SODIUM
     Route: 065
  5. ALTACE [Concomitant]
     Active Substance: RAMIPRIL
     Route: 065
  6. METOPROLOL. [Concomitant]
     Active Substance: METOPROLOL
     Route: 065
  7. VITAMIN D [Concomitant]
     Active Substance: CHOLECALCIFEROL
     Dosage: DRUG REPORTED: VITAMIN D
     Route: 065
  8. CALCIUM [Concomitant]
     Active Substance: CALCIUM
     Route: 065
  9. BONIVA [Suspect]
     Active Substance: IBANDRONATE SODIUM
     Indication: OSTEOPOROSIS
     Route: 065
  10. ZETIA [Concomitant]
     Active Substance: EZETIMIBE
     Route: 065
  11. AMLODIPINE [Concomitant]
     Active Substance: AMLODIPINE BESYLATE
     Route: 065
  12. LIPITOR [Concomitant]
     Active Substance: ATORVASTATIN CALCIUM
     Route: 065

REACTIONS (1)
  - Burning sensation [Not Recovered/Not Resolved]
